FAERS Safety Report 25621782 (Version 1)
Quarter: 2025Q3

REPORT INFORMATION
  Report Type: Spontaneous
  Country: US (occurrence: None)
  Receive Date: 20250729
  Receipt Date: 20250729
  Transmission Date: 20251020
  Serious: Yes (Death)
  Sender: FDA-CTU
  Company Number: None

PATIENT
  Age: 58 Year
  Sex: Female

DRUGS (1)
  1. SILDENAFIL CITRATE [Suspect]
     Active Substance: SILDENAFIL CITRATE
     Indication: Pulmonary arterial hypertension
     Dosage: ?20 MG 3 TIMES A DAY ORAL
     Route: 048
     Dates: start: 20240731

REACTIONS (1)
  - Hypoxia [None]

NARRATIVE: CASE EVENT DATE: 20250606
